FAERS Safety Report 8566481-7 (Version None)
Quarter: 2012Q3

REPORT INFORMATION
  Report Type: 
  Country: None (occurrence: None)
  Receive Date: 20120803
  Receipt Date: 20120720
  Transmission Date: 20120928
  Serious: Yes (Death)
  Sender: FDA-Public Use
  Company Number: US-COVIDIEN/TYCO HEALTHCARE/MALLINCKRODT-T201203003

PATIENT
  Age: 21 Year
  Sex: Male
  Weight: 57 kg

DRUGS (4)
  1. HYDROMORPHONE HYDROCHLORIDE [Suspect]
     Indication: DEBRIDEMENT
     Dosage: 2 MG IV AT 0100 AND 0200
     Route: 042
  2. ALCOHOL [Suspect]
  3. OXYCODONE HCL [Suspect]
     Dosage: 10 MG, UNK
  4. HYDROMORPHONE HYDROCHLORIDE [Suspect]
     Dosage: 1 MG IV EVERY 10 MINUTES
     Route: 042

REACTIONS (1)
  - DEATH [None]
